FAERS Safety Report 11364328 (Version 3)
Quarter: 2015Q3

REPORT INFORMATION
  Report Type: Spontaneous
  Country: IT (occurrence: IT)
  Receive Date: 20150811
  Receipt Date: 20150821
  Transmission Date: 20151125
  Serious: Yes (Hospitalization)
  Sender: FDA-Public Use
  Company Number: IT-MERCK-1508ITA002158

PATIENT
  Age: 71 Year
  Sex: Female
  Weight: 67 kg

DRUGS (5)
  1. REBETOL [Suspect]
     Active Substance: RIBAVIRIN
     Indication: HEPATITIS C
     Dosage: 5 TABLETS, DAILY(3 TABLETS IN MORNING AND 2 TABLETS IN THE EVENING)
     Route: 048
  2. URSODIOL. [Concomitant]
     Active Substance: URSODIOL
  3. EXVIERA [Suspect]
     Active Substance: DASABUVIR
     Indication: HEPATITIS C
     Dosage: 2 DOSE UNIT(1 TABLET IN MORNING AND 1 TABLET IN EVENING), DAILY
     Route: 048
     Dates: start: 20150709, end: 20150724
  4. PROPRANOLOL HYDROCHLORIDE. [Concomitant]
     Active Substance: PROPRANOLOL HYDROCHLORIDE
  5. VIEKIRAX [Suspect]
     Active Substance: OMBITASVIR\PARITAPREVIR\RITONAVIR
     Indication: HEPATITIS C
     Dosage: 2 DOSE UNITS(TABLETS), DAILY IN THE MORNING
     Route: 048
     Dates: start: 20150709, end: 20150724

REACTIONS (1)
  - Hyperbilirubinaemia [Not Recovered/Not Resolved]

NARRATIVE: CASE EVENT DATE: 20150724
